FAERS Safety Report 16290706 (Version 1)
Quarter: 2019Q2

REPORT INFORMATION
  Report Type: Spontaneous
  Country: US (occurrence: US)
  Receive Date: 20190509
  Receipt Date: 20190509
  Transmission Date: 20190711
  Serious: Yes (Other)
  Sender: FDA-Public Use
  Company Number: US-SUNOVION-2019SUN001861

PATIENT
  Sex: Female

DRUGS (1)
  1. APTIOM [Suspect]
     Active Substance: ESLICARBAZEPINE ACETATE
     Dosage: 800 MG, BID
     Route: 048

REACTIONS (3)
  - Seizure [Unknown]
  - Somnolence [Unknown]
  - Inappropriate schedule of product administration [Unknown]
